FAERS Safety Report 7055194-9 (Version None)
Quarter: 2010Q4

REPORT INFORMATION
  Report Type: 
  Country: None (occurrence: None)
  Receive Date: 20101020
  Receipt Date: 20101020
  Transmission Date: 20110411
  Serious: Yes (Life-Threatening, Disabling)
  Sender: FDA-Public Use
  Company Number: None

PATIENT
  Sex: Male
  Weight: 136.0791 kg

DRUGS (2)
  1. AVANDIA [Suspect]
     Indication: TYPE 2 DIABETES MELLITUS
     Dosage: ONCE DAILY ORAL
     Route: 048
     Dates: start: 20000101, end: 20070101
  2. GLUCOPHAGE [Suspect]
     Indication: DIABETES MELLITUS
     Dosage: TWICE DAILY ORAL
     Route: 048
     Dates: start: 19960101, end: 20070101

REACTIONS (2)
  - ATRIAL FIBRILLATION [None]
  - CARDIAC FAILURE CONGESTIVE [None]
